FAERS Safety Report 6257401-9 (Version None)
Quarter: 2009Q3

REPORT INFORMATION
  Report Type: 
  Country: None (occurrence: None)
  Receive Date: 20090706
  Receipt Date: 20090625
  Transmission Date: 20100115
  Serious: Yes (Disabling)
  Sender: FDA-Public Use
  Company Number: US-MERCK-0804USA00844

PATIENT
  Age: 66 Year
  Sex: Female

DRUGS (1)
  1. FOSAMAX [Suspect]
     Indication: FRACTURE
     Route: 048
     Dates: start: 20030101, end: 20070101

REACTIONS (13)
  - ABSCESS [None]
  - ANTISOCIAL BEHAVIOUR [None]
  - ANXIETY [None]
  - DEPRESSION [None]
  - EMOTIONAL DISORDER [None]
  - GINGIVAL BLEEDING [None]
  - GINGIVAL PAIN [None]
  - HYPERTENSION [None]
  - LOOSE TOOTH [None]
  - RESORPTION BONE INCREASED [None]
  - TOOTH DISORDER [None]
  - TOOTH LOSS [None]
  - TOOTHACHE [None]
